FAERS Safety Report 10008640 (Version 1)
Quarter: 2014Q1

REPORT INFORMATION
  Report Type: Spontaneous
  Country: US (occurrence: US)
  Receive Date: 20140312
  Receipt Date: 20140312
  Transmission Date: 20141002
  Serious: No
  Sender: FDA-Public Use
  Company Number: US-INCYTE CORPORATION-2012IN000058

PATIENT
  Age: 64 Year
  Sex: Female

DRUGS (2)
  1. JAKAFI [Suspect]
     Indication: MYELOFIBROSIS
     Dosage: 15 MG, BID
     Dates: start: 20120106
  2. SYNTHROID [Concomitant]
     Dosage: 50 ?G, QD

REACTIONS (1)
  - Stomatitis [Not Recovered/Not Resolved]
